FAERS Safety Report 7051312-7 (Version None)
Quarter: 2010Q4

REPORT INFORMATION
  Report Type: 
  Country: None (occurrence: None)
  Receive Date: 20101013
  Receipt Date: 20100929
  Transmission Date: 20110411
  Serious: Yes (Death)
  Sender: FDA-Public Use
  Company Number: 017538

PATIENT
  Sex: Male

DRUGS (2)
  1. CIMZIA [Suspect]
     Indication: CROHN'S DISEASE
     Dosage: (400 MG 1X/MONTH SUBCUTANEOUS)
     Route: 058
     Dates: start: 20090401, end: 20100519
  2. GLEEVEC [Concomitant]

REACTIONS (9)
  - ANAEMIA [None]
  - CHRONIC MYELOID LEUKAEMIA [None]
  - CROHN'S DISEASE [None]
  - FALL [None]
  - INJURY [None]
  - PNEUMONIA [None]
  - SOMNOLENCE [None]
  - SUBDURAL HAEMATOMA [None]
  - THROMBOCYTOPENIA [None]
